FAERS Safety Report 23781667 (Version 2)
Quarter: 2024Q2

REPORT INFORMATION
  Report Type: Spontaneous
  Country: CA (occurrence: CA)
  Receive Date: 20240425
  Receipt Date: 20240510
  Transmission Date: 20240716
  Serious: Yes (Other)
  Sender: FDA-Public Use
  Company Number: CA-ALK-ABELLO A/S-2024AA001765

PATIENT

DRUGS (1)
  1. GRASTEK [Suspect]
     Active Substance: PHLEUM PRATENSE POLLEN
     Indication: Product used for unknown indication

REACTIONS (3)
  - Thrombosis [Unknown]
  - Skin discolouration [Unknown]
  - Peripheral coldness [Unknown]
